FAERS Safety Report 25191041 (Version 2)
Quarter: 2025Q3

REPORT INFORMATION
  Report Type: Spontaneous
  Country: EU (occurrence: EU)
  Receive Date: 20250411
  Receipt Date: 20250811
  Transmission Date: 20251020
  Serious: Yes (Death)
  Sender: MYLAN
  Company Number: EU-ROCHE-10000241026

PATIENT
  Sex: Male

DRUGS (32)
  1. VENLAFAXINE [Interacting]
     Active Substance: VENLAFAXINE HYDROCHLORIDE
     Indication: Product used for unknown indication
  2. VENLAFAXINE [Interacting]
     Active Substance: VENLAFAXINE HYDROCHLORIDE
     Route: 065
  3. VENLAFAXINE [Interacting]
     Active Substance: VENLAFAXINE HYDROCHLORIDE
     Route: 065
  4. VENLAFAXINE [Interacting]
     Active Substance: VENLAFAXINE HYDROCHLORIDE
  5. QUETIAPINE [Interacting]
     Active Substance: QUETIAPINE
     Indication: Product used for unknown indication
  6. QUETIAPINE [Interacting]
     Active Substance: QUETIAPINE
     Route: 065
  7. QUETIAPINE [Interacting]
     Active Substance: QUETIAPINE
     Route: 065
  8. QUETIAPINE [Interacting]
     Active Substance: QUETIAPINE
  9. FENTANYL [Interacting]
     Active Substance: FENTANYL
     Indication: Product used for unknown indication
  10. FENTANYL [Interacting]
     Active Substance: FENTANYL
     Route: 065
  11. FENTANYL [Interacting]
     Active Substance: FENTANYL
     Route: 065
  12. FENTANYL [Interacting]
     Active Substance: FENTANYL
  13. ALPRAZOLAM [Interacting]
     Active Substance: ALPRAZOLAM
     Indication: Product used for unknown indication
  14. ALPRAZOLAM [Interacting]
     Active Substance: ALPRAZOLAM
     Route: 065
  15. ALPRAZOLAM [Interacting]
     Active Substance: ALPRAZOLAM
     Route: 065
  16. ALPRAZOLAM [Interacting]
     Active Substance: ALPRAZOLAM
  17. ZOLPIDEM [Interacting]
     Active Substance: ZOLPIDEM TARTRATE
     Indication: Product used for unknown indication
  18. ZOLPIDEM [Interacting]
     Active Substance: ZOLPIDEM TARTRATE
     Route: 065
  19. ZOLPIDEM [Interacting]
     Active Substance: ZOLPIDEM TARTRATE
     Route: 065
  20. ZOLPIDEM [Interacting]
     Active Substance: ZOLPIDEM TARTRATE
  21. RIVOTRIL [Interacting]
     Active Substance: CLONAZEPAM
     Indication: Product used for unknown indication
  22. RIVOTRIL [Interacting]
     Active Substance: CLONAZEPAM
     Route: 065
  23. RIVOTRIL [Interacting]
     Active Substance: CLONAZEPAM
     Route: 065
  24. RIVOTRIL [Interacting]
     Active Substance: CLONAZEPAM
  25. PROPOFOL [Interacting]
     Active Substance: PROPOFOL
     Indication: Product used for unknown indication
  26. PROPOFOL [Interacting]
     Active Substance: PROPOFOL
     Route: 065
  27. PROPOFOL [Interacting]
     Active Substance: PROPOFOL
     Route: 065
  28. PROPOFOL [Interacting]
     Active Substance: PROPOFOL
  29. DIAZEPAM [Interacting]
     Active Substance: DIAZEPAM
     Indication: Product used for unknown indication
  30. DIAZEPAM [Interacting]
     Active Substance: DIAZEPAM
     Route: 065
  31. DIAZEPAM [Interacting]
     Active Substance: DIAZEPAM
     Route: 065
  32. DIAZEPAM [Interacting]
     Active Substance: DIAZEPAM

REACTIONS (5)
  - Non-cardiogenic pulmonary oedema [Fatal]
  - Drug interaction [Fatal]
  - Toxicity to various agents [Fatal]
  - Overdose [Fatal]
  - Intentional product misuse [Fatal]
